FAERS Safety Report 7219302-9 (Version None)
Quarter: 2011Q1

REPORT INFORMATION
  Report Type: 
  Country: None (occurrence: None)
  Receive Date: 20110111
  Receipt Date: 20110103
  Transmission Date: 20110831
  Serious: Yes (Other)
  Sender: FDA-Public Use
  Company Number: US-PFIZER INC-2010176243

PATIENT
  Sex: Male
  Weight: 83.9 kg

DRUGS (1)
  1. CELEBREX [Suspect]
     Indication: ARTHRITIS
     Dosage: 200 MG, 2X/DAY
     Route: 048
     Dates: start: 20101223, end: 20101224

REACTIONS (11)
  - PALPITATIONS [None]
  - SPEECH DISORDER [None]
  - INFLUENZA LIKE ILLNESS [None]
  - CHEST PAIN [None]
  - MYOCARDIAL INFARCTION [None]
  - ASTHENIA [None]
  - MALAISE [None]
  - VOMITING [None]
  - DRUG DISPENSING ERROR [None]
  - PRURITUS [None]
  - ANGINA PECTORIS [None]
